FAERS Safety Report 24715952 (Version 2)
Quarter: 2025Q2

REPORT INFORMATION
  Report Type: Spontaneous
  Country: US (occurrence: US)
  Receive Date: 20241210
  Receipt Date: 20250422
  Transmission Date: 20250716
  Serious: Yes (Death, Other)
  Sender: BRISTOL-MYERS SQUIBB COMPANY
  Company Number: US-BRISTOL-MYERS SQUIBB COMPANY-2024-190029

PATIENT
  Age: 70 Year
  Sex: Male

DRUGS (1)
  1. REVLIMID [Suspect]
     Active Substance: LENALIDOMIDE
     Indication: Plasma cell myeloma
     Dosage: 1 CAP DAILY FOR 21 DS ON 7 DS OFF
     Route: 048
     Dates: start: 20230213

REACTIONS (1)
  - Death [Fatal]

NARRATIVE: CASE EVENT DATE: 20241203
